FAERS Safety Report 13975854 (Version 9)
Quarter: 2019Q2

REPORT INFORMATION
  Report Type: Report from Study
  Country: DE (occurrence: DE)
  Receive Date: 20170915
  Receipt Date: 20190524
  Transmission Date: 20190711
  Serious: Yes (Other)
  Sender: FDA-Public Use
  Company Number: PHHY2017DE116142

PATIENT
  Age: 74 Year
  Sex: Female
  Weight: 60 kg

DRUGS (17)
  1. EXJADE [Suspect]
     Active Substance: DEFERASIROX
     Dosage: UNK
     Route: 065
     Dates: start: 20180219, end: 20180502
  2. AZACITIDINE. [Suspect]
     Active Substance: AZACITIDINE
     Indication: MYELODYSPLASTIC SYNDROME
     Dosage: 75 MG/M2, (DAY 1-7 AT A CYCLE LENGTH OF 28 DAYS)
     Route: 058
     Dates: start: 20180423
  3. REVLIMID [Concomitant]
     Active Substance: LENALIDOMIDE
     Indication: MYELODYSPLASTIC SYNDROME
     Dosage: 10 MG, QD (D1-21; QD28)
     Route: 065
     Dates: start: 20161031, end: 20171217
  4. EXJADE [Suspect]
     Active Substance: DEFERASIROX
     Dosage: 125 MG,(4.1 MG/KG BODY WEIGHT/DAY)EQUAL TO 2 TABLETS
     Route: 065
     Dates: start: 20170201, end: 20170614
  5. EXJADE [Suspect]
     Active Substance: DEFERASIROX
     Dosage: 125 MG, (2.05 MG/KG BODY WEIGHT/DAY)EQUAL TO 1 TABLETS
     Route: 065
     Dates: start: 20170615, end: 20170709
  6. CLINDAMYCIN. [Concomitant]
     Active Substance: CLINDAMYCIN
     Indication: SWELLING
  7. EXJADE [Suspect]
     Active Substance: DEFERASIROX
     Dosage: 125 MG, (4.91 MG/KG BODY WEIGHT/DAY)EQUAL TO 2 TABLETS
     Route: 065
     Dates: start: 20170710, end: 20170912
  8. CIPROFLOXACIN. [Concomitant]
     Active Substance: CIPROFLOXACIN
     Indication: PROPHYLAXIS
     Dosage: 1000 MG, BID
     Dates: start: 20180614, end: 20180621
  9. EXJADE [Suspect]
     Active Substance: DEFERASIROX
     Dosage: 180 MG (2.9 MG/KG BODY WEIGHT/DAY)
     Route: 065
     Dates: start: 20180704
  10. FOLIC ACID. [Concomitant]
     Active Substance: FOLIC ACID
     Indication: MYELODYSPLASTIC SYNDROME
     Dosage: 5 MG, QD (1-0-0-0)
     Route: 065
  11. EXJADE [Suspect]
     Active Substance: DEFERASIROX
     Indication: MYELODYSPLASTIC SYNDROME
     Dosage: 125 MG, (2.08 MG/KG BODY WEIGHT/DAY)=1 TABLET A 125 MG
     Route: 065
     Dates: start: 20161115, end: 20170131
  12. EXJADE [Suspect]
     Active Substance: DEFERASIROX
     Dosage: 90 MG, (1.5 MG/KG BODY WEIGHT/DAY)EQUAL TO 1 TABLETS
     Route: 065
     Dates: start: 20170913, end: 20180218
  13. EXJADE [Suspect]
     Active Substance: DEFERASIROX
     Dosage: 90 MG, (1.45 MG/KG BODY WEIGHT/DAY)
     Route: 065
     Dates: start: 20180503, end: 20180703
  14. AMPHO MORONAL [Concomitant]
     Active Substance: AMPHOTERICIN B
     Indication: PROPHYLAXIS
     Dosage: 200000 IE, QD
     Route: 065
     Dates: start: 20180420
  15. L THYROXIN [Concomitant]
     Active Substance: LEVOTHYROXINE SODIUM
     Indication: HYPOTHYROIDISM
     Dosage: 25 UG, QD (1-0-0)
     Route: 065
  16. IBUPROFEN. [Concomitant]
     Active Substance: IBUPROFEN
     Indication: SPINAL PAIN
     Dosage: UNK UNK, PRN
     Dates: start: 20170419, end: 20170517
  17. GRANISETRON [Concomitant]
     Active Substance: GRANISETRON
     Indication: PROPHYLAXIS
     Dosage: 2 MG, QD
     Route: 065

REACTIONS (12)
  - Blood disorder [Unknown]
  - Bone marrow failure [Unknown]
  - Leukopenia [Unknown]
  - Neutropenia [Unknown]
  - Neutrophil count decreased [Recovered/Resolved]
  - Pancytopenia [Not Recovered/Not Resolved]
  - Anaemia [Recovering/Resolving]
  - Platelet count decreased [Recovered/Resolved]
  - Thrombocytopenia [Unknown]
  - White blood cell count decreased [Not Recovered/Not Resolved]
  - Neutrophil count decreased [Recovering/Resolving]
  - Platelet count decreased [Recovered/Resolved]

NARRATIVE: CASE EVENT DATE: 20161214
